FAERS Safety Report 19681928 (Version 2)
Quarter: 2021Q3

REPORT INFORMATION
  Report Type: Report from Study
  Country: BR (occurrence: BR)
  Receive Date: 20210810
  Receipt Date: 20210825
  Transmission Date: 20211014
  Serious: Yes (Other)
  Sender: FDA-Public Use
  Company Number: NVSC2021BR178038

PATIENT
  Sex: Male
  Weight: 62 kg

DRUGS (4)
  1. ELIQUIS [Concomitant]
     Active Substance: APIXABAN
     Indication: CARDIAC DISORDER
     Dosage: 1 DF, BID(1 TAB AT MORNING, 1 TAB AT NIGHT) (STARTED 4YEARS AGO)
     Route: 048
  2. ANCORON [Concomitant]
     Active Substance: AMIODARONE HYDROCHLORIDE
     Indication: CARDIAC DISORDER
     Dosage: 1 DF, QD(1 TAB AT NIGHT, STARTED 10 YEARS AGO)
     Route: 048
  3. ENTRESTO [Suspect]
     Active Substance: SACUBITRIL\VALSARTAN
     Indication: CARDIAC FAILURE
     Dosage: 3 DF, BID
     Route: 065
     Dates: start: 201701
  4. ENTRESTO [Suspect]
     Active Substance: SACUBITRIL\VALSARTAN
     Dosage: 50 MG (1 TAB AT MORNING, 2 TABS AT  NIGHT)
     Route: 065

REACTIONS (1)
  - Arrhythmia [Unknown]
